FAERS Safety Report 12580785 (Version 4)
Quarter: 2016Q3

REPORT INFORMATION
  Report Type: Spontaneous
  Country: US (occurrence: US)
  Receive Date: 20160721
  Receipt Date: 20160929
  Transmission Date: 20161109
  Serious: Yes (Hospitalization)
  Sender: FDA-Public Use
  Company Number: US-PFIZER INC-2016352109

PATIENT
  Age: 66 Year
  Sex: Female
  Weight: 54 kg

DRUGS (12)
  1. KLONOPIN [Interacting]
     Active Substance: CLONAZEPAM
     Dosage: 0.05 MG, 3X/DAY (SOMETIMES ONLY TAKE TWICE)
     Route: 048
     Dates: start: 2013
  2. DICLOFENAC SODIUM. [Concomitant]
     Active Substance: DICLOFENAC SODIUM
     Indication: EXOSTOSIS
     Dosage: 0.5 G, 2X/DAY, (1% GEL)
     Route: 061
     Dates: start: 2011, end: 2011
  3. BIOTIN [Concomitant]
     Active Substance: BIOTIN
     Dosage: UNK
     Dates: start: 2015
  4. LYRICA [Suspect]
     Active Substance: PREGABALIN
     Indication: NEURALGIA
     Dosage: 150 MG, 2X/DAY
     Dates: start: 2013
  5. LYRICA [Interacting]
     Active Substance: PREGABALIN
     Dosage: 225 MG, DAILY (150 MG IN THE MORNING AND 75 MG AT NIGHT)
     Dates: start: 201512
  6. CALCIUM PLUS WITH MAGNESIUM + VITAMIN D [Concomitant]
     Dosage: UNK
     Dates: start: 2015
  7. LYRICA [Interacting]
     Active Substance: PREGABALIN
     Dosage: 225 MG, DAILY (150 MG IN MORNING 75 MG AT NIGHT)
     Dates: start: 2013
  8. OMEGA 3 PLUS D3 FISH OIL [Concomitant]
     Indication: OSTEOPENIA
     Dosage: UNK
     Dates: start: 2015
  9. CURCUMIN [Concomitant]
     Active Substance: CURCUMIN
     Indication: INFLAMMATION
     Dosage: UNK
     Dates: start: 2016
  10. RHINOCORT /00212602/ [Concomitant]
     Dosage: UNK
     Route: 045
     Dates: start: 2015
  11. KLONOPIN [Interacting]
     Active Substance: CLONAZEPAM
     Indication: NEURALGIA
     Dosage: 1 MG, DAILY (0.5 MG TABLET, TWO TABLETS A DAY)
     Route: 048
     Dates: start: 2012
  12. COENZYME Q10 [Concomitant]
     Active Substance: UBIDECARENONE
     Dosage: UNK
     Dates: start: 2015

REACTIONS (6)
  - Pre-existing condition improved [Unknown]
  - Memory impairment [Not Recovered/Not Resolved]
  - Swelling [Not Recovered/Not Resolved]
  - Therapeutic response unexpected [Unknown]
  - Drug interaction [Not Recovered/Not Resolved]
  - Oedema peripheral [Not Recovered/Not Resolved]

NARRATIVE: CASE EVENT DATE: 2013
